FAERS Safety Report 8011452-2 (Version None)
Quarter: 2011Q4

REPORT INFORMATION
  Report Type: 
  Country: None (occurrence: None)
  Receive Date: 20111222
  Receipt Date: 20111212
  Transmission Date: 20120403
  Serious: Yes (Other)
  Sender: FDA-Public Use
  Company Number: JP-2011-13015

PATIENT

DRUGS (1)
  1. SAMSCA [Suspect]
     Dosage: ORAL
     Route: 048
     Dates: start: 20110901

REACTIONS (2)
  - BLOOD CREATININE INCREASED [None]
  - BLOOD UREA INCREASED [None]
